FAERS Safety Report 11941510 (Version 1)
Quarter: 2016Q1

REPORT INFORMATION
  Report Type: Report from Study
  Country: US (occurrence: US)
  Receive Date: 20160122
  Receipt Date: 20160122
  Transmission Date: 20160526
  Serious: Yes (Hospitalization)
  Sender: FDA-Public Use
  Company Number: US-TEVA-626940USA

PATIENT
  Age: 42 Year
  Sex: Female

DRUGS (1)
  1. COPAXONE [Suspect]
     Active Substance: GLATIRAMER ACETATE
     Indication: MULTIPLE SCLEROSIS
     Route: 058
     Dates: start: 20140719, end: 20151218

REACTIONS (5)
  - Palpitations [Unknown]
  - Feeling hot [Unknown]
  - Vomiting [Unknown]
  - Abdominal pain [Unknown]
  - Injection related reaction [Unknown]

NARRATIVE: CASE EVENT DATE: 20151218
